FAERS Safety Report 14355637 (Version 1)
Quarter: 2018Q1

REPORT INFORMATION
  Report Type: Report from Study
  Country: ES (occurrence: ES)
  Receive Date: 20180105
  Receipt Date: 20180105
  Transmission Date: 20180509
  Serious: Yes (Death)
  Sender: FDA-Public Use
  Company Number: ES-JNJFOC-20180103304

PATIENT
  Age: 69 Year
  Sex: Male

DRUGS (1)
  1. SIMPONI [Suspect]
     Active Substance: GOLIMUMAB
     Indication: RHEUMATIC DISORDER
     Route: 058
     Dates: start: 20140529, end: 20171010

REACTIONS (1)
  - Malignant neoplasm of thorax [Fatal]

NARRATIVE: CASE EVENT DATE: 20171010
